FAERS Safety Report 16319038 (Version 1)
Quarter: 2019Q2

REPORT INFORMATION
  Report Type: Spontaneous
  Country: US (occurrence: US)
  Receive Date: 20190410
  Receipt Date: 20190410
  Transmission Date: 20190711
  Serious: No
  Sender: FDA-Public Use
  Company Number: None

PATIENT
  Age: 63 Year
  Sex: Female

DRUGS (1)
  1. OCTREOTIDE 5 ML MDV 200MCG/ML TEVA PARENTERAL MEDICINES [Suspect]
     Active Substance: OCTREOTIDE
     Indication: CARCINOID TUMOUR
     Route: 058
     Dates: start: 20150722

REACTIONS (3)
  - Blister [None]
  - Contusion [None]
  - Scar [None]

NARRATIVE: CASE EVENT DATE: 20190325
